FAERS Safety Report 11377257 (Version 1)
Quarter: 2015Q3

REPORT INFORMATION
  Report Type: Spontaneous
  Country: US (occurrence: US)
  Receive Date: 20150811
  Receipt Date: 20150811
  Transmission Date: 20151125
  Serious: No
  Sender: FDA-Public Use
  Company Number: US-ELI_LILLY_AND_COMPANY-US200810006943

PATIENT
  Age: 60 Year
  Sex: Female

DRUGS (6)
  1. NOVOLIN 70/30 [Concomitant]
     Active Substance: INSULIN HUMAN
     Dates: end: 20081001
  2. VITAMIN B12 [Concomitant]
     Active Substance: CYANOCOBALAMIN
     Dates: start: 200809
  3. BYETTA [Concomitant]
     Active Substance: EXENATIDE
  4. GLUCOPHAGE [Concomitant]
     Active Substance: METFORMIN HYDROCHLORIDE
  5. HUMULIN 70/30 [Suspect]
     Active Substance: INSULIN HUMAN
     Dates: start: 20081001
  6. NOVOLIN [Concomitant]
     Active Substance: INSULIN HUMAN

REACTIONS (4)
  - Rash generalised [Not Recovered/Not Resolved]
  - Generalised erythema [Not Recovered/Not Resolved]
  - Injection site reaction [Not Recovered/Not Resolved]
  - Pruritus [Not Recovered/Not Resolved]

NARRATIVE: CASE EVENT DATE: 20081007
